FAERS Safety Report 6747248-9 (Version None)
Quarter: 2010Q2

REPORT INFORMATION
  Report Type: 
  Country: None (occurrence: None)
  Receive Date: 20100528
  Receipt Date: 20100519
  Transmission Date: 20101027
  Serious: Yes (Hospitalization)
  Sender: FDA-Public Use
  Company Number: A0785455A

PATIENT
  Age: 59 Year
  Sex: Male
  Weight: 106.8 kg

DRUGS (1)
  1. AVANDIA [Suspect]
     Route: 048
     Dates: start: 20040101

REACTIONS (4)
  - ASTHMA [None]
  - HEART RATE DECREASED [None]
  - MULTIPLE FRACTURES [None]
  - MYOCARDIAL INFARCTION [None]
